FAERS Safety Report 22130353 (Version 1)
Quarter: 2023Q1

REPORT INFORMATION
  Report Type: Spontaneous
  Country: US (occurrence: US)
  Receive Date: 20230323
  Receipt Date: 20230323
  Transmission Date: 20230418
  Serious: No
  Sender: FDA-Public Use
  Company Number: US-TEVA-2023-US-2864294

PATIENT
  Age: 47 Year
  Sex: Female

DRUGS (4)
  1. JUNEL [Suspect]
     Active Substance: ETHINYL ESTRADIOL\NORETHINDRONE ACETATE
     Indication: Product used for unknown indication
     Dosage: 1.5-0.03 MG-MG
     Dates: start: 202108
  2. JUNEL FE 1/20 [Suspect]
     Active Substance: ETHINYL ESTRADIOL\NORETHINDRONE ACETATE
     Indication: Product used for unknown indication
     Dosage: 1-0.02 MG-MG
     Route: 065
  3. SPRINTEC [Suspect]
     Active Substance: ETHINYL ESTRADIOL\NORGESTIMATE
     Indication: Product used for unknown indication
     Dosage: 0.25-0.035 MG-MG
     Route: 065
  4. LEVOTHYROXINE SODIUM [Concomitant]
     Active Substance: LEVOTHYROXINE SODIUM
     Indication: Product used for unknown indication
     Route: 065

REACTIONS (10)
  - Rash [Unknown]
  - Erythema [Unknown]
  - Stress [Unknown]
  - Pruritus [Unknown]
  - Drug hypersensitivity [Unknown]
  - Depressed mood [Unknown]
  - Skin discolouration [Unknown]
  - Adverse event [Unknown]
  - Rash macular [Unknown]
  - Product substitution issue [Unknown]
